FAERS Safety Report 4549360-1 (Version None)
Quarter: 2005Q1

REPORT INFORMATION
  Report Type: 
  Country: None (occurrence: None)
  Receive Date: 20050106
  Receipt Date: 20041221
  Transmission Date: 20050727
  Serious: Yes (Other)
  Sender: FDA-Public Use
  Company Number: FR_040704436

PATIENT
  Age: 58 Year
  Sex: Female
  Weight: 70 kg

DRUGS (5)
  1. ZYPREXA [Suspect]
     Indication: BIPOLAR DISORDER
     Dosage: 20 MG DAY
     Dates: start: 20040201
  2. TEGRETOL [Concomitant]
  3. OXAZEPAM [Concomitant]
  4. ZOLOFT [Concomitant]
  5. IMOVANE (ZOPICLONE) [Concomitant]

REACTIONS (3)
  - ELECTROCARDIOGRAM QT CORRECTED INTERVAL PROLONGED [None]
  - ELECTROCARDIOGRAM QT PROLONGED [None]
  - LABORATORY TEST INTERFERENCE [None]
